FAERS Safety Report 6123481-4 (Version None)
Quarter: 2009Q1

REPORT INFORMATION
  Report Type: 
  Country: None (occurrence: None)
  Receive Date: 20090318
  Receipt Date: 20090312
  Transmission Date: 20090719
  Serious: No
  Sender: FDA-Public Use
  Company Number: US-B.I. PHARMACEUTICALS,INC./RIDGEFIELD-2009-BP-03223BP

PATIENT
  Age: 77 Year

DRUGS (1)
  1. FLOMAX [Suspect]

REACTIONS (4)
  - AMNESIA [None]
  - DIZZINESS [None]
  - LETHARGY [None]
  - NAUSEA [None]
